FAERS Safety Report 8210039-6 (Version None)
Quarter: 2012Q1

REPORT INFORMATION
  Report Type: 
  Country: None (occurrence: None)
  Receive Date: 20120314
  Receipt Date: 20110909
  Transmission Date: 20120608
  Serious: No
  Sender: FDA-Public Use
  Company Number: US-ASTRAZENECA-2011SE45606

PATIENT
  Age: 63 Year
  Sex: Female

DRUGS (2)
  1. TOPROL-XL [Suspect]
     Route: 048
  2. ZITHROMAX [Concomitant]

REACTIONS (10)
  - FLUSHING [None]
  - CARDIAC FLUTTER [None]
  - PYREXIA [None]
  - TEMPERATURE INTOLERANCE [None]
  - HEADACHE [None]
  - PARANASAL SINUS HYPERSECRETION [None]
  - LOWER RESPIRATORY TRACT INFECTION [None]
  - PALPITATIONS [None]
  - COUGH [None]
  - HEART RATE INCREASED [None]
